FAERS Safety Report 12536628 (Version 1)
Quarter: 2016Q3

REPORT INFORMATION
  Report Type: Spontaneous
  Country: US (occurrence: US)
  Receive Date: 20160707
  Receipt Date: 20160707
  Transmission Date: 20161109
  Serious: No
  Sender: FDA-Public Use
  Company Number: US-PFIZER INC-2016295257

PATIENT
  Sex: Male

DRUGS (1)
  1. ZMAX [Suspect]
     Active Substance: AZITHROMYCIN DIHYDRATE
     Dosage: UNK

REACTIONS (4)
  - Chromaturia [Unknown]
  - Burning sensation [Unknown]
  - Dysuria [Not Recovered/Not Resolved]
  - Paraesthesia [Unknown]
